FAERS Safety Report 7219915-4 (Version None)
Quarter: 2010Q4

REPORT INFORMATION
  Report Type: 
  Country: None (occurrence: None)
  Receive Date: 20101126
  Receipt Date: 20100805
  Transmission Date: 20110411
  Serious: No
  Sender: FDA-Public Use
  Company Number: 313038

PATIENT
  Age: 62 Year
  Sex: Male

DRUGS (1)
  1. VICTOZA [Suspect]
     Indication: TYPE 2 DIABETES MELLITUS
     Dosage: 0.9 MG, QD, SUBCUTANEOUS ; 0.6, QD, SUBCUTANEOUS ; 1.2 , SUBCUTANEOUS
     Route: 058

REACTIONS (2)
  - MALAISE [None]
  - VOMITING [None]
